FAERS Safety Report 10029441 (Version 1)
Quarter: 2014Q1

REPORT INFORMATION
  Report Type: Spontaneous
  Country: US (occurrence: US)
  Receive Date: 20140322
  Receipt Date: 20140322
  Transmission Date: 20141002
  Serious: Yes (Other)
  Sender: FDA-Public Use
  Company Number: PHEH2014US005546

PATIENT
  Sex: Male

DRUGS (7)
  1. FOCALIN XR [Suspect]
     Indication: ATTENTION DEFICIT/HYPERACTIVITY DISORDER
     Dosage: 30 MG, DAILY (20 MG QD AND 10 MG QD)
     Route: 048
  2. VITAMIN D [Concomitant]
     Dosage: UNK UKN, UNK
  3. CALCIUM [Concomitant]
     Dosage: UNK UKN, UNK
  4. ZOLOFT [Concomitant]
     Dosage: UNK UKN, UNK
  5. EPIPEN [Concomitant]
     Dosage: UNK UKN, UNK
  6. ADDERALL [Concomitant]
     Dosage: UNK UKN, UNK
  7. INSULIN [Concomitant]
     Dosage: UNK UKN, UNK

REACTIONS (7)
  - Hypersensitivity [Unknown]
  - Anaphylactic reaction [Unknown]
  - Dyspnoea [Unknown]
  - Pharyngeal oedema [Unknown]
  - Oedema mouth [Unknown]
  - Abdominal pain [Not Recovered/Not Resolved]
  - Nausea [Not Recovered/Not Resolved]
